FAERS Safety Report 4759760-2 (Version None)
Quarter: 2005Q3

REPORT INFORMATION
  Report Type: 
  Country: None (occurrence: None)
  Receive Date: 20050826
  Receipt Date: 20050512
  Transmission Date: 20060218
  Serious: No
  Sender: FDA-Public Use
  Company Number: 214506

PATIENT
  Age: 28 Year
  Sex: Male

DRUGS (6)
  1. RAPTIVA [Suspect]
     Indication: PSORIASIS
     Dosage: 1.1 ML,1/WEEK, SUBCUTANEOUS
     Route: 058
     Dates: start: 20050301
  2. TRIAMCINOLONE [Suspect]
     Indication: PSORIASIS
     Dosage: TOPICAL
     Route: 061
  3. LAUNDRY DETERGENT(DETERGENTS NOS) [Suspect]
     Indication: DRUG USE FOR UNKNOWN INDICATION
  4. GARLIQUE (GARLIC) [Concomitant]
  5. OCUVITE (ZINC NOS, VITAMIN E, VITAMIN A, SELENIUM NOS, LUTEIN, COPPER [Concomitant]
  6. LUBRIDERM LOTION NOS (LOTION NOS) [Concomitant]

REACTIONS (2)
  - ERYTHEMA [None]
  - NAUSEA [None]
